FAERS Safety Report 4762914-2 (Version None)
Quarter: 2005Q3

REPORT INFORMATION
  Report Type: 
  Country: None (occurrence: None)
  Receive Date: 20050907
  Receipt Date: 20050801
  Transmission Date: 20060218
  Serious: Yes (Hospitalization)
  Sender: FDA-Public Use
  Company Number: JP-ABBOTT-05P-087-0307241-00

PATIENT
  Sex: Male

DRUGS (4)
  1. LIPIDIL [Suspect]
     Indication: HYPERLIPIDAEMIA
     Route: 048
     Dates: start: 20050501, end: 20050606
  2. LIPIDIL [Suspect]
     Dates: start: 20050606, end: 20050607
  3. THYROID TAB [Concomitant]
     Indication: DRUG USE FOR UNKNOWN INDICATION
     Dates: start: 20050603
  4. ASPIRIN [Concomitant]
     Indication: GOUT
     Dates: start: 20050501

REACTIONS (3)
  - GOITRE [None]
  - HEPATIC FUNCTION ABNORMAL [None]
  - PYREXIA [None]
